FAERS Safety Report 13359937 (Version 1)
Quarter: 2017Q1

REPORT INFORMATION
  Report Type: Report from Study
  Country: JP (occurrence: JP)
  Receive Date: 20170322
  Receipt Date: 20170322
  Transmission Date: 20170429
  Serious: Yes (Other)
  Sender: FDA-Public Use
  Company Number: JP-PFIZER INC-2017117609

PATIENT
  Age: 78 Year
  Sex: Male

DRUGS (3)
  1. FLUOROURACIL. [Suspect]
     Active Substance: FLUOROURACIL
     Indication: HYPOPHARYNGEAL CANCER
     Dosage: UNK
  2. DOCETAXEL. [Suspect]
     Active Substance: DOCETAXEL
     Indication: HYPOPHARYNGEAL CANCER
     Dosage: UNK
  3. NEDAPLATIN [Suspect]
     Active Substance: NEDAPLATIN
     Indication: HYPOPHARYNGEAL CANCER
     Dosage: UNK

REACTIONS (1)
  - Hepatitis B [Recovered/Resolved]
